FAERS Safety Report 10025272 (Version 8)
Quarter: 2015Q2

REPORT INFORMATION
  Report Type: Spontaneous
  Country: US (occurrence: US)
  Receive Date: 20140320
  Receipt Date: 20150427
  Transmission Date: 20150821
  Serious: Yes (Hospitalization, Other)
  Sender: FDA-Public Use
  Company Number: US-GLAXOSMITHKLINE-A1063767A

PATIENT
  Age: 32 Year
  Sex: Female

DRUGS (8)
  1. FLOLAN [Suspect]
     Active Substance: EPOPROSTENOL SODIUM
     Dosage: 44 NG/KG/MIN CONTINUOUSLY; CONCENTRATION: 45,000 NG/ML; PUMP RATE 74 ML/DAY; VIAL STRENGTH: 1.5 MG
     Route: 042
     Dates: start: 20140227
  2. FLOLAN [Suspect]
     Active Substance: EPOPROSTENOL SODIUM
     Dosage: UNK
  3. FLOLAN [Suspect]
     Active Substance: EPOPROSTENOL SODIUM
     Indication: PULMONARY ARTERIAL HYPERTENSION
     Dosage: 12 NG/KG/MIN CONTINUOUSLYCONCENTRATION: 15,000 NG/MLPUMP RATE 60 ML/DAYVIAL STRENGTH: 1.5 MG15 [...]
     Route: 042
     Dates: start: 20140131
  4. FLOLAN [Suspect]
     Active Substance: EPOPROSTENOL SODIUM
     Dosage: 58 NG/KG/MIN CONTINUOUS; CONCENTRATION: 60,000 NG/ML; PUMP RATE: 73 ML/DAY; VIAL STRENGTH: 1.5 MG
     Route: 042
     Dates: start: 20140227
  5. FLOLAN [Suspect]
     Active Substance: EPOPROSTENOL SODIUM
     Dosage: UNK
     Dates: start: 20140131
  6. WARFARIN [Concomitant]
     Active Substance: WARFARIN
  7. FLOLAN [Suspect]
     Active Substance: EPOPROSTENOL SODIUM
     Dosage: UNK
     Dates: start: 20140131
  8. COUMADIN [Concomitant]
     Active Substance: WARFARIN SODIUM

REACTIONS (13)
  - Medical device complication [Recovered/Resolved]
  - Catheter site haemorrhage [Not Recovered/Not Resolved]
  - Chest pain [Unknown]
  - Catheter site erythema [Unknown]
  - Burning sensation [Unknown]
  - Emergency care examination [Unknown]
  - Pulmonary hypertension [Unknown]
  - Fatigue [Unknown]
  - Device malfunction [Unknown]
  - Musculoskeletal pain [Unknown]
  - Erythema [Unknown]
  - Hypersensitivity [Unknown]
  - Catheter site pruritus [Unknown]

NARRATIVE: CASE EVENT DATE: 20140403
